FAERS Safety Report 7426612-9 (Version None)
Quarter: 2011Q2

REPORT INFORMATION
  Report Type: 
  Country: None (occurrence: None)
  Receive Date: 20110420
  Receipt Date: 20110415
  Transmission Date: 20111010
  Serious: Yes (Hospitalization, Other)
  Sender: FDA-Public Use
  Company Number: AU-PFIZER INC-2011083716

PATIENT
  Age: 83 Year
  Sex: Female

DRUGS (2)
  1. CADUET [Suspect]
     Indication: BLOOD PRESSURE
     Dosage: UNK
  2. CADUET [Suspect]
     Indication: BLOOD CHOLESTEROL

REACTIONS (2)
  - KNEE OPERATION [None]
  - BLOOD PRESSURE FLUCTUATION [None]
